FAERS Safety Report 9201043 (Version 2)
Quarter: 2013Q2

REPORT INFORMATION
  Report Type: Spontaneous
  Country: AU (occurrence: AU)
  Receive Date: 20130401
  Receipt Date: 20130411
  Transmission Date: 20140414
  Serious: Yes (Other)
  Sender: FDA-Public Use
  Company Number: AU-JNJFOC-20130316078

PATIENT
  Age: 66 Year
  Sex: Female

DRUGS (3)
  1. REMICADE [Suspect]
     Indication: ANKYLOSING SPONDYLITIS
     Route: 042
  2. REMICADE [Suspect]
     Indication: ANKYLOSING SPONDYLITIS
     Dosage: 2ND DOSE
     Route: 042
     Dates: start: 20130322
  3. HYDROCORTISONE [Concomitant]
     Indication: PREMEDICATION
     Route: 065

REACTIONS (3)
  - Infusion related reaction [Recovered/Resolved]
  - Swollen tongue [Unknown]
  - Syncope [Recovered/Resolved]
